FAERS Safety Report 8432235-5 (Version None)
Quarter: 2012Q2

REPORT INFORMATION
  Report Type: 
  Country: None (occurrence: None)
  Receive Date: 20120613
  Receipt Date: 20120606
  Transmission Date: 20120825
  Serious: Yes (Hospitalization, Other)
  Sender: FDA-Public Use
  Company Number: PHHY2012BR049912

PATIENT
  Age: 79 Year
  Sex: Female

DRUGS (2)
  1. DIOVAN [Suspect]
     Indication: HYPERTENSION
     Dosage: ONE TABLET (160MG) IN THE MORNING AND ONE TABLET (160MG) AT NIGHT
     Dates: start: 20050101
  2. DIOVAN HCT [Suspect]
     Dosage: 1 DF, UNK

REACTIONS (11)
  - DRUG HYPERSENSITIVITY [None]
  - ABNORMAL SENSATION IN EYE [None]
  - CORNEAL LESION [None]
  - DIARRHOEA [None]
  - GLAUCOMA [None]
  - DRUG DISPENSING ERROR [None]
  - MALAISE [None]
  - EYE PAIN [None]
  - PYREXIA [None]
  - VOMITING [None]
  - EYE MOVEMENT DISORDER [None]
